FAERS Safety Report 9418510 (Version 6)
Quarter: 2014Q3

REPORT INFORMATION
  Report Type: Report from Study
  Country: JP (occurrence: JP)
  Receive Date: 20130725
  Receipt Date: 20140822
  Transmission Date: 20150326
  Serious: Yes (Death, Other)
  Sender: FDA-Public Use
  Company Number: JP-ROCHE-1241578

PATIENT
  Age: 85 Year
  Sex: Male
  Weight: 50 kg

DRUGS (17)
  1. FLUITRAN [Concomitant]
     Active Substance: TRICHLORMETHIAZIDE
     Route: 048
     Dates: end: 20130626
  2. GASTER [Concomitant]
     Active Substance: FAMOTIDINE
     Route: 048
     Dates: end: 20130626
  3. ROCALTROL [Concomitant]
     Active Substance: CALCITRIOL
     Route: 048
     Dates: end: 20130626
  4. FESIN (JAPAN) [Concomitant]
     Indication: NEPHROSCLEROSIS
     Route: 042
     Dates: end: 20130514
  5. FESIN (JAPAN) [Concomitant]
     Indication: NEPHROSCLEROSIS
     Route: 042
     Dates: start: 20130515, end: 20130607
  6. LASIX [Concomitant]
     Active Substance: FUROSEMIDE
     Route: 048
     Dates: end: 20130626
  7. METHOXY POLYETHYLENE GLYCOL-EPOETIN BETA [Suspect]
     Active Substance: PEGZEREPOETIN ALFA
     Indication: NEPHROGENIC ANAEMIA
     Route: 042
     Dates: start: 20130610, end: 20130610
  8. PERSANTINE [Concomitant]
     Active Substance: DIPYRIDAMOLE
     Indication: PROPHYLAXIS
     Dosage: DRUG REPROTED: PERSANTIN-L
     Route: 048
     Dates: end: 20130626
  9. MARZULENE-S [Concomitant]
     Active Substance: SODIUM GUALENATE
     Route: 048
     Dates: end: 20130626
  10. CARNITINE CHLORIDE [Concomitant]
     Indication: NEPHROSCLEROSIS
     Route: 048
     Dates: end: 20130626
  11. AMIYU [Concomitant]
     Indication: NEPHROSCLEROSIS
     Route: 048
     Dates: end: 20130626
  12. PRECIPITATED CALCIUM CARBONATE [Concomitant]
     Active Substance: CALCIUM CARBONATE
     Indication: NEPHROSCLEROSIS
     Route: 048
     Dates: end: 20130626
  13. METHOXY POLYETHYLENE GLYCOL-EPOETIN BETA [Suspect]
     Active Substance: PEGZEREPOETIN ALFA
     Indication: NEPHROGENIC ANAEMIA
     Route: 042
     Dates: start: 20130408, end: 20130603
  14. ATELEC [Concomitant]
     Active Substance: CILNIDIPINE
     Route: 048
     Dates: end: 20130626
  15. MINIPRESS [Concomitant]
     Active Substance: PRAZOSIN HYDROCHLORIDE
     Route: 048
     Dates: end: 20130626
  16. RENAGEL [Concomitant]
     Active Substance: SEVELAMER HYDROCHLORIDE
     Indication: PROPHYLAXIS
     Route: 048
     Dates: end: 20130626
  17. NEUQUINON [Concomitant]
     Active Substance: UBIDECARENONE
     Indication: PROPHYLAXIS
     Route: 048
     Dates: end: 20130626

REACTIONS (4)
  - Myelodysplastic syndrome [Not Recovered/Not Resolved]
  - Anaemia [Fatal]
  - Platelet count decreased [Fatal]
  - Parvovirus infection [Unknown]

NARRATIVE: CASE EVENT DATE: 20130603
